FAERS Safety Report 7935917-4 (Version None)
Quarter: 2011Q4

REPORT INFORMATION
  Report Type: 
  Country: None (occurrence: None)
  Receive Date: 20111123
  Receipt Date: 20111118
  Transmission Date: 20120403
  Serious: Yes (Other)
  Sender: FDA-Public Use
  Company Number: US-BAYER-2011-105094

PATIENT
  Age: 44 Year
  Sex: Female

DRUGS (3)
  1. INTERFERON BETA-1B [Suspect]
     Dosage: 6 MIU, QOD
     Route: 058
  2. INTERFERON BETA-1B [Suspect]
     Indication: RELAPSING-REMITTING MULTIPLE SCLEROSIS
     Dosage: 4 MIU, QOD
     Route: 058
     Dates: start: 20111004
  3. IBUPROFEN [Concomitant]
     Indication: PREMEDICATION

REACTIONS (7)
  - HOT FLUSH [None]
  - FLUSHING [None]
  - GINGIVITIS [None]
  - COGNITIVE DISORDER [None]
  - CHILLS [None]
  - ASTHMA [None]
  - MULTIPLE SCLEROSIS [None]
